FAERS Safety Report 8576397-8 (Version None)
Quarter: 2012Q3

REPORT INFORMATION
  Report Type: 
  Country: None (occurrence: None)
  Receive Date: 20120807
  Receipt Date: 20120801
  Transmission Date: 20120928
  Serious: No
  Sender: FDA-Public Use
  Company Number: FR-PFIZER INC-2010156016

PATIENT

DRUGS (1)
  1. IBUPROFEN + PSEUDOEPHEDRINE HCL [Suspect]
     Dosage: UNK
     Dates: start: 20100922, end: 20100922

REACTIONS (2)
  - ACCIDENTAL DRUG INTAKE BY CHILD [None]
  - ACCIDENTAL OVERDOSE [None]
